FAERS Safety Report 21141496 (Version 1)
Quarter: 2022Q3

REPORT INFORMATION
  Report Type: Spontaneous
  Country: CN (occurrence: None)
  Receive Date: 20220728
  Receipt Date: 20220728
  Transmission Date: 20221026
  Serious: Yes (Other)
  Sender: FDA-Public Use
  Company Number: 2022A265345

PATIENT
  Age: 18431 Day
  Sex: Male
  Weight: 62 kg

DRUGS (1)
  1. DAPAGLIFLOZIN [Suspect]
     Active Substance: DAPAGLIFLOZIN
     Indication: Diabetes mellitus
     Route: 048
     Dates: start: 20220202, end: 20220702

REACTIONS (1)
  - Marasmus [Recovering/Resolving]

NARRATIVE: CASE EVENT DATE: 20220702
